FAERS Safety Report 6003912-0 (Version None)
Quarter: 2008Q4

REPORT INFORMATION
  Report Type: 
  Country: None (occurrence: None)
  Receive Date: 20081216
  Receipt Date: 20081113
  Transmission Date: 20090506
  Serious: No
  Sender: FDA-Public Use
  Company Number: US-BAYER-US-2006-038926

PATIENT
  Age: 22 Year
  Sex: Female
  Weight: 82 kg

DRUGS (1)
  1. MIRENA [Suspect]
     Indication: CONTRACEPTION
     Route: 015
     Dates: start: 20060801, end: 20080601

REACTIONS (5)
  - AMENORRHOEA [None]
  - MENORRHAGIA [None]
  - MENSTRUATION DELAYED [None]
  - MENSTRUATION IRREGULAR [None]
  - POST PROCEDURAL HAEMORRHAGE [None]
